FAERS Safety Report 7277758-X (Version None)
Quarter: 2011Q1

REPORT INFORMATION
  Report Type: 
  Country: None (occurrence: None)
  Receive Date: 20110207
  Receipt Date: 20100115
  Transmission Date: 20110831
  Serious: No
  Sender: FDA-Public Use
  Company Number: A0838992A

PATIENT
  Age: 72 Year
  Sex: Male

DRUGS (7)
  1. OLUX E [Suspect]
     Indication: PSORIASIS
     Dosage: 1APP PER DAY
     Route: 061
     Dates: start: 20090905, end: 20091003
  2. COUMADIN [Concomitant]
  3. ALLOPURINOL [Concomitant]
  4. HYDROCHLOROTHIAZIDE [Concomitant]
  5. ATENOLOL [Concomitant]
  6. ASPIRIN [Concomitant]
  7. SYNTHROID [Concomitant]

REACTIONS (1)
  - DRUG INEFFECTIVE [None]
